FAERS Safety Report 6313175-4 (Version None)
Quarter: 2009Q3

REPORT INFORMATION
  Report Type: 
  Country: None (occurrence: None)
  Receive Date: 20090818
  Receipt Date: 20090812
  Transmission Date: 20100115
  Serious: Yes (Hospitalization)
  Sender: FDA-Public Use
  Company Number: GB-ROCHE-612030

PATIENT
  Sex: Male
  Weight: 68.6 kg

DRUGS (6)
  1. CAPECITABINE [Suspect]
     Indication: GASTRIC CANCER
     Dosage: FREQUENCY: D1-14Q3W. ROUTE:BID PO.TEMPORARILY INTERRUPTED. DATE OF LAST DOSE PRIOR TO SAE: 14 JAN 09
     Route: 048
     Dates: start: 20081203
  2. BLINDED BEVACIZUMAB [Suspect]
     Indication: GASTRIC CANCER
     Dosage: FREQUENCY: D1Q3W. FORM:INFUSION. TEMPORARILY INTERRUPTED. DATE OF LAST DOSE PRIOR TO SAE:14 JAN 09
     Route: 042
     Dates: start: 20081203
  3. CISPLATIN [Suspect]
     Indication: GASTRIC CANCER
     Dosage: FREQUENCY:D1Q3W. FORM: INFUSION. TEMPORARILY INTERRUPTED. DATE OF LAST DOSE PRIOR TO SAE: 14 JAN 09
     Route: 042
     Dates: start: 20081203
  4. ALLOPURINOL [Concomitant]
  5. ORAMORPH SR [Concomitant]
     Dates: start: 20090201
  6. CLEXANE [Concomitant]
     Dates: start: 20081125, end: 20090201

REACTIONS (1)
  - GASTROINTESTINAL HAEMORRHAGE [None]
